FAERS Safety Report 20892754 (Version 4)
Quarter: 2023Q1

REPORT INFORMATION
  Report Type: Spontaneous
  Country: IT (occurrence: IT)
  Receive Date: 20220531
  Receipt Date: 20230105
  Transmission Date: 20230417
  Serious: Yes (Other)
  Sender: FDA-Public Use
  Company Number: IT-SUN PHARMACEUTICAL INDUSTRIES LTD-2022R1-338696

PATIENT
  Age: 16 Year
  Sex: Female

DRUGS (5)
  1. LANSOPRAZOLE [Suspect]
     Active Substance: LANSOPRAZOLE
     Indication: Gastritis
     Dosage: UNK (30 MG A.M. AND 15 MG P.M.)
     Route: 048
  2. LITHIUM [Concomitant]
     Active Substance: LITHIUM
     Indication: Bipolar disorder
     Dosage: 300 MILLIGRAM, TID
     Route: 065
  3. LITHIUM [Concomitant]
     Active Substance: LITHIUM
     Indication: Catatonia
  4. PERICIAZINE [Concomitant]
     Active Substance: PERICIAZINE
     Indication: Bipolar disorder
     Dosage: 10 MILLIGRAM, DAILY
     Route: 065
  5. PERICIAZINE [Concomitant]
     Active Substance: PERICIAZINE
     Indication: Catatonia

REACTIONS (2)
  - Catatonia [Recovering/Resolving]
  - Depression [Recovering/Resolving]
